FAERS Safety Report 5226414-8 (Version None)
Quarter: 2007Q1

REPORT INFORMATION
  Report Type: 
  Country: None (occurrence: None)
  Receive Date: 20070201
  Receipt Date: 20070124
  Transmission Date: 20070707
  Serious: Yes (Other)
  Sender: FDA-Public Use
  Company Number: US-PFIZER INC-2007007002

PATIENT
  Sex: Male
  Weight: 99.8 kg

DRUGS (2)
  1. LIPITOR [Suspect]
     Indication: BLOOD CHOLESTEROL INCREASED
  2. ANTIHYPERTENSIVES [Concomitant]

REACTIONS (2)
  - HYPOTENSION [None]
  - PARKINSON'S DISEASE [None]
